FAERS Safety Report 6303566-X (Version None)
Quarter: 2009Q3

REPORT INFORMATION
  Report Type: 
  Country: None (occurrence: None)
  Receive Date: 20090807
  Receipt Date: 20090807
  Transmission Date: 20100115
  Serious: Yes (Hospitalization)
  Sender: FDA-Public Use
  Company Number: None

PATIENT
  Age: 50 Year
  Sex: Female
  Weight: 53.5244 kg

DRUGS (1)
  1. LEVAQUIN [Suspect]
     Indication: PYREXIA
     Dates: start: 20090729, end: 20090730

REACTIONS (4)
  - CHEST DISCOMFORT [None]
  - PARAESTHESIA [None]
  - RASH [None]
  - VIRAL UPPER RESPIRATORY TRACT INFECTION [None]
